FAERS Safety Report 9539009 (Version 2)
Quarter: 2013Q4

REPORT INFORMATION
  Report Type: Spontaneous
  Country: GB (occurrence: GB)
  Receive Date: 20130920
  Receipt Date: 20131004
  Transmission Date: 20140711
  Serious: Yes (Other)
  Sender: FDA-Public Use
  Company Number: GB-PFIZER INC-2013266517

PATIENT
  Age: 77 Year
  Sex: Female
  Weight: 65 kg

DRUGS (4)
  1. ATORVASTATIN [Suspect]
     Dosage: UNK
     Dates: start: 20130702
  2. ASPIRIN [Concomitant]
     Dosage: UNK
     Dates: start: 20130411
  3. BENDROFLUMETHIAZIDE [Concomitant]
     Dosage: UNK
     Dates: start: 20130524
  4. AMLODIPINE [Concomitant]
     Dosage: UNK
     Dates: start: 20130524

REACTIONS (1)
  - Dry skin [Recovered/Resolved]
